FAERS Safety Report 6048588-1 (Version None)
Quarter: 2009Q1

REPORT INFORMATION
  Report Type: 
  Country: None (occurrence: None)
  Receive Date: 20090123
  Receipt Date: 20090113
  Transmission Date: 20090719
  Serious: Yes (Other)
  Sender: FDA-Public Use
  Company Number: JP-PFIZER INC-2008099054

PATIENT

DRUGS (3)
  1. EPIRUBICIN HYDROCHLORIDE [Suspect]
     Indication: BREAST CANCER
     Route: 042
  2. FLUOROURACIL [Suspect]
     Indication: BREAST CANCER
     Route: 042
  3. CYCLOPHOSPHAMIDE [Concomitant]
     Route: 042

REACTIONS (1)
  - INTERSTITIAL LUNG DISEASE [None]
